FAERS Safety Report 7016781-7 (Version None)
Quarter: 2010Q3

REPORT INFORMATION
  Report Type: 
  Country: None (occurrence: None)
  Receive Date: 20100909
  Receipt Date: 20100611
  Transmission Date: 20110219
  Serious: No
  Sender: FDA-Public Use
  Company Number: 2010SP034102

PATIENT
  Age: 40 Year
  Sex: Female

DRUGS (2)
  1. SAPHRIS [Suspect]
     Indication: BIPOLAR DISORDER
     Dosage: 5 MG;QD;SL
     Route: 060
     Dates: end: 20100611
  2. LAMICTAL (CON.) [Concomitant]

REACTIONS (3)
  - DIPLOPIA [None]
  - INAPPROPRIATE SCHEDULE OF DRUG ADMINISTRATION [None]
  - UNDERDOSE [None]
